FAERS Safety Report 23133164 (Version 1)
Quarter: 2023Q4

REPORT INFORMATION
  Report Type: Report from Study
  Country: US (occurrence: US)
  Receive Date: 20231101
  Receipt Date: 20231101
  Transmission Date: 20240110
  Serious: Yes (Hospitalization, Other)
  Sender: FDA-Public Use
  Company Number: US-ABBVIE-22K-163-4360696-00

PATIENT
  Sex: Female
  Weight: 59 kg

DRUGS (3)
  1. HUMIRA [Suspect]
     Active Substance: ADALIMUMAB
     Indication: Rheumatoid arthritis
     Dosage: FORM STRENGTH: 40 MILIGRAM ?CF
     Route: 058
     Dates: start: 20210301
  2. HUMIRA [Suspect]
     Active Substance: ADALIMUMAB
     Indication: Rheumatoid arthritis
     Route: 058
     Dates: start: 202011
  3. JANSSEN COVID-19 VACCINE [Concomitant]
     Active Substance: AD26.COV2.S
     Indication: COVID-19 immunisation
     Dosage: TIME INTERVAL: 1 TOTAL
     Route: 030
     Dates: start: 20210408, end: 20210408

REACTIONS (28)
  - Hysterectomy [Unknown]
  - COVID-19 [Not Recovered/Not Resolved]
  - Weight decreased [Recovering/Resolving]
  - Weight increased [Recovering/Resolving]
  - Tooth extraction [Not Recovered/Not Resolved]
  - Breast cyst [Unknown]
  - Aptyalism [Unknown]
  - Throat irritation [Not Recovered/Not Resolved]
  - Constipation [Not Recovered/Not Resolved]
  - Decreased appetite [Unknown]
  - Tooth loss [Unknown]
  - Mastication disorder [Unknown]
  - Dysphagia [Unknown]
  - Pruritus [Not Recovered/Not Resolved]
  - Dry mouth [Not Recovered/Not Resolved]
  - Tooth fracture [Unknown]
  - General symptom [Recovering/Resolving]
  - Sinusitis [Unknown]
  - Alopecia [Unknown]
  - Unevaluable event [Unknown]
  - Rheumatoid arthritis [Unknown]
  - Erythema [Unknown]
  - Benign neoplasm of thyroid gland [Unknown]
  - Lung disorder [Not Recovered/Not Resolved]
  - Dehydration [Not Recovered/Not Resolved]
  - Osteoporosis [Recovered/Resolved]
  - Osteoporosis [Not Recovered/Not Resolved]
  - Precancerous cells present [Unknown]

NARRATIVE: CASE EVENT DATE: 20200101
